FAERS Safety Report 15934654 (Version 1)
Quarter: 2019Q1

REPORT INFORMATION
  Report Type: Spontaneous
  Country: US (occurrence: US)
  Receive Date: 20190207
  Receipt Date: 20190207
  Transmission Date: 20190417
  Serious: Yes (Death)
  Sender: FDA-Public Use
  Company Number: PHEH2019US005551

PATIENT
  Age: 59 Year
  Sex: Female
  Weight: 52.16 kg

DRUGS (9)
  1. VITAMIN D3 [Concomitant]
     Active Substance: CHOLECALCIFEROL
     Indication: BONE DISORDER
     Dosage: 2000 IU, UNK
     Route: 065
  2. IBRANCE [Suspect]
     Active Substance: PALBOCICLIB
     Indication: BREAST CANCER METASTATIC
     Dosage: 125 MG, QD
     Route: 048
     Dates: start: 20170902
  3. ASPIRIN. [Concomitant]
     Active Substance: ASPIRIN
     Indication: PULMONARY EMBOLISM
     Dosage: 325 MG, QD
     Route: 065
  4. CENTRUM FOR WOMEN [Concomitant]
     Active Substance: VITAMINS
     Indication: VITAMIN SUPPLEMENTATION
     Dosage: 1 DF, QD
     Route: 065
  5. LETROZOLE. [Suspect]
     Active Substance: LETROZOLE
     Indication: BREAST CANCER
     Dosage: 2.5 MG, QD
     Route: 048
     Dates: start: 201707
  6. DIAZEPAM. [Concomitant]
     Active Substance: DIAZEPAM
     Indication: STRESS
     Dosage: 2 MG, TID
     Route: 065
     Dates: start: 2012
  7. CALCIUM 600+D [Concomitant]
     Active Substance: CALCIUM\VITAMIN D
     Indication: BONE DISORDER
     Dosage: 1 DF, QD
     Route: 065
  8. LEVOTHYROXINE. [Concomitant]
     Active Substance: LEVOTHYROXINE
     Indication: THYROID DISORDER
     Dosage: 50 UG, UNK
     Route: 065
     Dates: start: 2008
  9. VITAMIN B12 [Concomitant]
     Active Substance: CYANOCOBALAMIN
     Indication: PRODUCT USED FOR UNKNOWN INDICATION
     Dosage: 1500 UG, UNK
     Route: 065

REACTIONS (8)
  - Drug ineffective [Unknown]
  - White blood cell count abnormal [Unknown]
  - Vomiting [Recovered/Resolved with Sequelae]
  - Nausea [Recovered/Resolved]
  - Decreased appetite [Unknown]
  - Dizziness [Unknown]
  - Death [Fatal]
  - Diarrhoea [Recovered/Resolved with Sequelae]

NARRATIVE: CASE EVENT DATE: 20170903
